FAERS Safety Report 8065938-5 (Version None)
Quarter: 2012Q1

REPORT INFORMATION
  Report Type: 
  Country: None (occurrence: None)
  Receive Date: 20120124
  Receipt Date: 20120118
  Transmission Date: 20120608
  Serious: Yes (Other)
  Sender: FDA-Public Use
  Company Number: CO-SANOFI-AVENTIS-2012SA004414

PATIENT
  Age: 7 Month
  Sex: Male

DRUGS (1)
  1. NALIDIXIC ACID [Suspect]
     Route: 048
     Dates: start: 20120114, end: 20120115

REACTIONS (2)
  - DYSKINESIA [None]
  - FEELING OF DESPAIR [None]
